FAERS Safety Report 4630264-0 (Version None)
Quarter: 2005Q2

REPORT INFORMATION
  Report Type: 
  Country: None (occurrence: None)
  Receive Date: 20050405
  Receipt Date: 20050405
  Transmission Date: 20051028
  Serious: Yes (Hospitalization)
  Sender: FDA-Public Use
  Company Number: None

PATIENT
  Sex: Male
  Weight: 42.9 kg

DRUGS (7)
  1. METHOTREXATE [Suspect]
     Indication: LYMPHOMA
     Dosage: 12 MG IT ONCE ON 12/6
     Dates: start: 20041206
  2. CYTARABINE [Suspect]
     Indication: LYMPHOMA
     Dosage: 100MG IV ON 12/6 + 12/7
     Route: 042
     Dates: start: 20041206
  3. CYTARABINE [Suspect]
     Indication: LYMPHOMA
     Dosage: 100MG IV ON 12/6 + 12/7
     Route: 042
     Dates: start: 20041207
  4. BACTRIM [Concomitant]
  5. CEFEPIME [Concomitant]
  6. ZANTAC [Concomitant]
  7. NYSTATIN [Concomitant]

REACTIONS (12)
  - APHASIA [None]
  - BACTERIAL INFECTION [None]
  - BLOOD CULTURE POSITIVE [None]
  - FACIAL PALSY [None]
  - HEADACHE [None]
  - HEMIPARESIS [None]
  - HYPOAESTHESIA [None]
  - NAUSEA [None]
  - NERVOUS SYSTEM DISORDER [None]
  - PYREXIA [None]
  - SEPSIS [None]
  - SPEECH DISORDER [None]
